FAERS Safety Report 21839007 (Version 1)
Quarter: 2023Q1

REPORT INFORMATION
  Report Type: Spontaneous
  Country: US (occurrence: US)
  Receive Date: 20230109
  Receipt Date: 20230109
  Transmission Date: 20230418
  Serious: No
  Sender: FDA-Public Use
  Company Number: US-FreseniusKabi-FK202300269

PATIENT
  Age: 64 Year
  Sex: Female

DRUGS (1)
  1. EPINEPHRINE BITARTRATE\LIDOCAINE HYDROCHLORIDE [Suspect]
     Active Substance: EPINEPHRINE BITARTRATE\LIDOCAINE HYDROCHLORIDE
     Indication: Dental local anaesthesia
     Dosage: ROUTE OF ADMIN - PERCUTANEOUS TO MAXILLA GUM REGION NEAR ROOTS OF TEETH.?DOSAGE - DOSE ASKED BUT UNK

REACTIONS (1)
  - Influenza like illness [Recovered/Resolved]
